FAERS Safety Report 10461394 (Version 5)
Quarter: 2015Q4

REPORT INFORMATION
  Report Type: Report from Study
  Country: US (occurrence: None)
  Receive Date: 20140915
  Receipt Date: 20151216
  Transmission Date: 20160304
  Serious: Yes (Hospitalization, Other)
  Sender: FDA-Public Use
  Company Number: ADR-2014-01445

PATIENT
  Age: 43 Year
  Sex: Female

DRUGS (2)
  1. COMPOUNDED BACLOFEN INTRATHECAL 1,200.0MCG/ML [Suspect]
     Active Substance: BACLOFEN
     Indication: PAIN
     Dosage: 340.3MCG/DAY
  2. DILAUDID [Suspect]
     Active Substance: HYDROMORPHONE HYDROCHLORIDE
     Indication: PAIN
     Dosage: 1.1343MG/DAY

REACTIONS (14)
  - Device dislocation [None]
  - Implant site pain [None]
  - Device leakage [None]
  - Pain [None]
  - Complex regional pain syndrome [None]
  - Anxiety [None]
  - Drug withdrawal syndrome [None]
  - Vomiting [None]
  - Pruritus [None]
  - Medical device site pain [None]
  - Hypoaesthesia [None]
  - Feeling abnormal [None]
  - Nausea [None]
  - Drug intolerance [None]
